FAERS Safety Report 21932240 (Version 3)
Quarter: 2023Q2

REPORT INFORMATION
  Report Type: Spontaneous
  Country: US (occurrence: US)
  Receive Date: 20230131
  Receipt Date: 20230427
  Transmission Date: 20230722
  Serious: No
  Sender: FDA-Public Use
  Company Number: US-PFIZER INC-PV202300016165

PATIENT
  Age: 50 Year
  Sex: Female

DRUGS (2)
  1. IBRANCE [Suspect]
     Active Substance: PALBOCICLIB
     Dosage: 125 MG
  2. IBRANCE [Suspect]
     Active Substance: PALBOCICLIB
     Dosage: 100 MG

REACTIONS (12)
  - Stomatitis [Not Recovered/Not Resolved]
  - Oropharyngeal pain [Not Recovered/Not Resolved]
  - Nasal dryness [Unknown]
  - Eye pain [Unknown]
  - Eye pruritus [Unknown]
  - Dry skin [Unknown]
  - Headache [Unknown]
  - Toothache [Unknown]
  - Glossodynia [Unknown]
  - Oral pain [Unknown]
  - Nasal congestion [Unknown]
  - Rhinorrhoea [Unknown]
